FAERS Safety Report 7049426-0 (Version None)
Quarter: 2010Q4

REPORT INFORMATION
  Report Type: 
  Country: None (occurrence: None)
  Receive Date: 20101018
  Receipt Date: 20101012
  Transmission Date: 20110411
  Serious: No
  Sender: FDA-Public Use
  Company Number: US-PFIZER INC-2010130175

PATIENT
  Sex: Female
  Weight: 72.5 kg

DRUGS (3)
  1. LIPITOR [Suspect]
     Indication: BLOOD CHOLESTEROL INCREASED
     Dosage: 20 MG, DAILY
     Route: 048
  2. SECTRAL [Concomitant]
     Dosage: 400 MG, UNK
  3. COZAAR [Concomitant]
     Dosage: UNK

REACTIONS (2)
  - MALAISE [None]
  - VOMITING [None]
